FAERS Safety Report 14498964 (Version 2)
Quarter: 2018Q1

REPORT INFORMATION
  Report Type: Spontaneous
  Country: US (occurrence: US)
  Receive Date: 20180207
  Receipt Date: 20180321
  Transmission Date: 20180509
  Serious: Yes (Hospitalization)
  Sender: FDA-Public Use
  Company Number: US-BAUSCH-BL-2018-003118

PATIENT
  Age: 66 Year
  Sex: Female

DRUGS (11)
  1. LIPITOR [Concomitant]
     Active Substance: ATORVASTATIN CALCIUM
     Indication: BLOOD CHOLESTEROL INCREASED
     Dosage: 10 YEARS AGO
     Dates: start: 2008
  2. METFORMIN [Suspect]
     Active Substance: METFORMIN HYDROCHLORIDE
     Dosage: ONCE IN A DAY, NOON
     Route: 048
     Dates: start: 2017
  3. CENTRUM SILVER WOMEN 50 PLUS [Concomitant]
     Active Substance: MINERALS\VITAMINS
     Indication: PROPHYLAXIS
     Dates: start: 2008, end: 201801
  4. METFORMIN [Suspect]
     Active Substance: METFORMIN HYDROCHLORIDE
     Dosage: ONCE IN A DAY, NIGHT
     Route: 048
     Dates: start: 2017
  5. LOSARTAN. [Suspect]
     Active Substance: LOSARTAN
     Indication: PROPHYLAXIS
     Dosage: ONCE A DAY
     Route: 065
     Dates: start: 201507
  6. METFORMIN [Suspect]
     Active Substance: METFORMIN HYDROCHLORIDE
     Indication: DIABETES MELLITUS
     Dosage: IN JUL/2015 OR AUG/2015
     Route: 048
     Dates: start: 2015
  7. BABY ASPIRIN [Concomitant]
     Active Substance: ASPIRIN
     Indication: PRODUCT USED FOR UNKNOWN INDICATION
     Dates: start: 201704
  8. FENOFIBRATE. [Concomitant]
     Active Substance: FENOFIBRATE
     Indication: BLOOD TRIGLYCERIDES INCREASED
     Dosage: 12 YEARS AGO
     Dates: start: 2006
  9. METOPROLOL SUCCINATE. [Concomitant]
     Active Substance: METOPROLOL SUCCINATE
     Indication: HEART RATE INCREASED
     Dosage: EXTENDED RELEASE
     Dates: start: 2006
  10. METFORMIN [Suspect]
     Active Substance: METFORMIN HYDROCHLORIDE
     Dosage: ONCE IN A DAY, MORNING
     Route: 048
     Dates: start: 2017
  11. OLMESARTAN [Suspect]
     Active Substance: OLMESARTAN
     Indication: HYPERTENSION
     Dosage: IN THE MORNING AFTER BREAKFAST; DOSE: 40/12.5 MG
     Route: 048
     Dates: start: 201707

REACTIONS (4)
  - Hypertension [Unknown]
  - Head injury [Recovering/Resolving]
  - Dizziness [Recovered/Resolved]
  - Syncope [Recovering/Resolving]

NARRATIVE: CASE EVENT DATE: 20170421
